FAERS Safety Report 6583263-6 (Version None)
Quarter: 2010Q1

REPORT INFORMATION
  Report Type: 
  Country: None (occurrence: None)
  Receive Date: 20100216
  Receipt Date: 20100210
  Transmission Date: 20100710
  Serious: Yes (Death)
  Sender: FDA-Public Use
  Company Number: A0838296A

PATIENT

DRUGS (2)
  1. FLOLAN [Suspect]
     Indication: VASODILATATION
     Route: 055
  2. MECHANICAL VENTILATION [Concomitant]

REACTIONS (5)
  - DEATH [None]
  - DRUG ADMINISTRATION ERROR [None]
  - ENDOTRACHEAL INTUBATION COMPLICATION [None]
  - FOREIGN BODY ASPIRATION [None]
  - HAEMORRHAGE [None]
